FAERS Safety Report 8988413 (Version 1)
Quarter: 2013Q1

REPORT INFORMATION
  Report Type: Spontaneous
  Country: US (occurrence: None)
  Receive Date: 20121221
  Receipt Date: 20121221
  Transmission Date: 20140127
  Serious: Yes (Life-Threatening, Hospitalization)
  Sender: FDA-Public Use
  Company Number: None

PATIENT
  Age: 64 Year
  Sex: Male
  Weight: 79.7 kg

DRUGS (11)
  1. OFATUMUMAB [Suspect]
     Indication: CHRONIC LYMPHOCYTIC LEUKAEMIA
     Dosage: 100MG, Q28DAYS, IV
     Route: 042
     Dates: start: 20120612, end: 20121031
  2. ALEMTUZUMAB [Suspect]
     Indication: CHRONIC LYMPHOCYTIC LEUKAEMIA
     Dosage: 30MG, Q3X PER WK, SC
     Route: 058
     Dates: start: 20121002, end: 20121113
  3. ALLOPURINOL [Concomitant]
  4. ATIVAN (LORAZEPAM) [Concomitant]
  5. DIPHENHYDRAMINE [Concomitant]
  6. LASIX (FUROSEMIDE) [Concomitant]
  7. MAGNESIUM OXIDE [Concomitant]
  8. MEPRON (ATOVAQUONE) [Concomitant]
  9. PANTOPRAZOLE [Concomitant]
  10. TRAMADOL [Concomitant]
  11. VALCYTE (VALGANCICLOVIR) [Concomitant]

REACTIONS (4)
  - Aspergillus test positive [None]
  - Human rhinovirus test positive [None]
  - Ascites [None]
  - Pleural effusion [None]
